FAERS Safety Report 24210458 (Version 1)
Quarter: 2024Q3

REPORT INFORMATION
  Report Type: Spontaneous
  Country: US (occurrence: US)
  Receive Date: 20240814
  Receipt Date: 20240814
  Transmission Date: 20241017
  Serious: Yes (Death)
  Sender: PFIZER
  Company Number: US-PFIZER INC-PV202400105401

PATIENT
  Age: 100 Year
  Sex: Female

DRUGS (8)
  1. IBRANCE [Suspect]
     Active Substance: PALBOCICLIB
     Dosage: 75MG, DAILY FOR 21 DAYS, THEN 14 DAYS OFF
     Route: 048
     Dates: start: 20201215
  2. TYLENOL [Concomitant]
     Active Substance: ACETAMINOPHEN
     Dosage: UNK
  3. ACETAMINOPHEN [Concomitant]
     Active Substance: ACETAMINOPHEN
     Dosage: UNK
  4. VITAMIN D3 [Concomitant]
     Active Substance: CHOLECALCIFEROL
     Dosage: UNK
  5. CARVEDILOL [Concomitant]
     Active Substance: CARVEDILOL
     Dosage: 6.25
  6. LISINOPRIL [Concomitant]
     Active Substance: LISINOPRIL
     Dosage: 2.5
  7. WARFARIN [Concomitant]
     Active Substance: WARFARIN
     Dosage: 5
  8. XARELTO [Concomitant]
     Active Substance: RIVAROXABAN
     Dosage: 20

REACTIONS (2)
  - Death [Fatal]
  - Off label use [Unknown]

NARRATIVE: CASE EVENT DATE: 20201215
